FAERS Safety Report 5831543-1 (Version None)
Quarter: 2008Q3

REPORT INFORMATION
  Report Type: 
  Country: None (occurrence: None)
  Receive Date: 20080730
  Receipt Date: 20080724
  Transmission Date: 20090109
  Serious: Yes (Congenital Anomaly)
  Sender: FDA-Public Use
  Company Number: 1000000249

PATIENT
  Sex: Female

DRUGS (1)
  1. CELEXA [Suspect]
     Dosage: TRANSPLACENTAL
     Route: 064
     Dates: start: 20020101, end: 20021106

REACTIONS (3)
  - ATRIAL SEPTAL DEFECT [None]
  - CARDIAC MURMUR [None]
  - MATERNAL DRUGS AFFECTING FOETUS [None]
